FAERS Safety Report 9248338 (Version 1)
Quarter: 2013Q1

REPORT INFORMATION
  Report Type: Spontaneous
  Country: US (occurrence: None)
  Receive Date: 20130305
  Receipt Date: 20130305
  Transmission Date: 20140127
  Serious: Yes (Other)
  Sender: FDA-Public Use
  Company Number: 163-21880-12092831

PATIENT
  Age: 67 Year
  Sex: Male

DRUGS (2)
  1. REVLIMID [Suspect]
     Indication: PLASMA CELL MYELOMA
     Dosage: QD M, W, F X 28D, PO
     Route: 048
     Dates: start: 20101022
  2. TRIAMTERENE/HCTZ (DYAZIDE) [Concomitant]

REACTIONS (2)
  - Rash pruritic [None]
  - Local swelling [None]
